FAERS Safety Report 6555558-3 (Version None)
Quarter: 2010Q1

REPORT INFORMATION
  Report Type: 
  Country: None (occurrence: None)
  Receive Date: 20100128
  Receipt Date: 20100120
  Transmission Date: 20100710
  Serious: Yes (Hospitalization)
  Sender: FDA-Public Use
  Company Number: JP-ASTRAZENECA-2010SE03411

PATIENT
  Age: 59 Year
  Sex: Male

DRUGS (4)
  1. SEROQUEL [Suspect]
     Route: 048
     Dates: start: 20100113, end: 20100118
  2. LITHIUM [Concomitant]
     Route: 048
     Dates: start: 20100103
  3. LOSIZOPILON [Concomitant]
     Route: 048
     Dates: start: 20100103, end: 20100113
  4. HIRNAMIN [Concomitant]
     Route: 048
     Dates: start: 20100103, end: 20100115

REACTIONS (3)
  - ALTERED STATE OF CONSCIOUSNESS [None]
  - MUSCLE RIGIDITY [None]
  - PYREXIA [None]
